FAERS Safety Report 23054167 (Version 2)
Quarter: 2023Q4

REPORT INFORMATION
  Report Type: Report from Study
  Country: MX (occurrence: MX)
  Receive Date: 20231011
  Receipt Date: 20231019
  Transmission Date: 20240110
  Serious: Yes (Hospitalization, Other)
  Sender: FDA-Public Use
  Company Number: MX-BAYER-2023A141163

PATIENT
  Age: 29 Year
  Sex: Female

DRUGS (3)
  1. ADEMPAS [Suspect]
     Active Substance: RIOCIGUAT
     Indication: Pulmonary arterial hypertension
     Dosage: 2 MG
     Route: 048
     Dates: start: 20231002, end: 202310
  2. ADEMPAS [Suspect]
     Active Substance: RIOCIGUAT
     Indication: Pulmonary arterial hypertension
     Dosage: 2 MG, UNK
     Dates: start: 20231009
  3. MACITENTAN [Suspect]
     Active Substance: MACITENTAN
     Dosage: 10 MG, QD

REACTIONS (7)
  - Painful respiration [Recovered/Resolved]
  - Dizziness [Recovered/Resolved with Sequelae]
  - Dysgeusia [None]
  - Vomiting [Not Recovered/Not Resolved]
  - Cardiac failure [None]
  - Haemoptysis [None]
  - Pleural effusion [None]

NARRATIVE: CASE EVENT DATE: 20230904
